FAERS Safety Report 5008226-3 (Version None)
Quarter: 2006Q2

REPORT INFORMATION
  Report Type: 
  Country: None (occurrence: None)
  Receive Date: 20060523
  Receipt Date: 20060512
  Transmission Date: 20061013
  Serious: Yes (Hospitalization, Disabling)
  Sender: FDA-Public Use
  Company Number: BE-JNJFOC-20060503386

PATIENT
  Age: 69 Year

DRUGS (12)
  1. REMICADE [Suspect]
     Indication: RHEUMATOID ARTHRITIS
     Route: 042
  2. COVERSYL [Concomitant]
     Route: 065
  3. ASAFLOW [Concomitant]
     Route: 065
  4. CORUNO [Concomitant]
     Route: 065
  5. ARAVA [Concomitant]
     Route: 065
  6. MEDROL [Concomitant]
     Route: 065
  7. ALLOPURINOL [Concomitant]
     Route: 065
  8. AMLOR [Concomitant]
     Route: 065
  9. ZOLPIDEM TARTRATE [Concomitant]
     Route: 065
  10. TRAZOLAN [Concomitant]
     Route: 065
  11. PROZAC [Concomitant]
     Route: 065
  12. ZOCOR [Concomitant]
     Route: 065

REACTIONS (1)
  - MENINGITIS TUBERCULOUS [None]
